FAERS Safety Report 6874768-9 (Version None)
Quarter: 2010Q3

REPORT INFORMATION
  Report Type: 
  Country: None (occurrence: None)
  Receive Date: 20100723
  Receipt Date: 20100719
  Transmission Date: 20110219
  Serious: Yes (Hospitalization, Other)
  Sender: FDA-Public Use
  Company Number: RB-13269-2010

PATIENT
  Age: 29 Year
  Sex: Female

DRUGS (1)
  1. SUBOXONE [Suspect]
     Indication: DRUG DEPENDENCE
     Dosage: (8 MG TID SUBLINGUAL)
     Route: 060
     Dates: start: 20070101, end: 20100706

REACTIONS (4)
  - HAEMORRHAGE [None]
  - HYSTERECTOMY [None]
  - UTERINE PROLAPSE [None]
  - WITHDRAWAL SYNDROME [None]
